FAERS Safety Report 24071001 (Version 1)
Quarter: 2024Q3

REPORT INFORMATION
  Report Type: Report from Study
  Country: RO (occurrence: RO)
  Receive Date: 20240710
  Receipt Date: 20240710
  Transmission Date: 20241017
  Serious: No
  Sender: ROCHE
  Company Number: RO-ROCHE-3452082

PATIENT
  Age: 42 Year
  Sex: Female
  Weight: 65.0 kg

DRUGS (1)
  1. PHESGO [Suspect]
     Active Substance: HYALURONIDASE-ZZXF\PERTUZUMAB\TRASTUZUMAB
     Indication: Invasive breast carcinoma
     Dosage: 600MG/600MG
     Route: 065

REACTIONS (2)
  - Malaise [Unknown]
  - Illness [Unknown]
